FAERS Safety Report 21633404 (Version 1)
Quarter: 2022Q4

REPORT INFORMATION
  Report Type: Spontaneous
  Country: US (occurrence: US)
  Receive Date: 20221123
  Receipt Date: 20221123
  Transmission Date: 20230113
  Serious: No
  Sender: FDA-Public Use
  Company Number: US-ChurchDwight-2022-CDW-01704

PATIENT
  Age: 65 Year
  Sex: Female

DRUGS (4)
  1. ZICAM COLD REMEDY NASAL SWABS (HOMEOPATHICS) [Suspect]
     Active Substance: HOMEOPATHICS\ZINC ACETATE\ZINC GLUCONATE
     Indication: Product used for unknown indication
     Dosage: FOR THE PAST 2 WEEKS, 1 DAY OFF IN BETWEEN, ALMOST EVERY DAY
     Route: 045
     Dates: start: 20221102, end: 20221114
  2. DOXITIN [Concomitant]
     Indication: Depression
  3. MIRTAZAPINE [Concomitant]
     Active Substance: MIRTAZAPINE
     Indication: Depression
  4. ZYPREXA [Concomitant]
     Active Substance: OLANZAPINE
     Indication: Muscle relaxant therapy

REACTIONS (2)
  - Anosmia [Not Recovered/Not Resolved]
  - Hypogeusia [Not Recovered/Not Resolved]

NARRATIVE: CASE EVENT DATE: 20221115
